FAERS Safety Report 14165091 (Version 2)
Quarter: 2020Q2

REPORT INFORMATION
  Report Type: Spontaneous
  Country: GB (occurrence: GB)
  Receive Date: 20171107
  Receipt Date: 20200430
  Transmission Date: 20200713
  Serious: Yes (Hospitalization)
  Sender: FDA-Public Use
  Company Number: GB-ALLERGAN-1763494US

PATIENT
  Sex: Female

DRUGS (3)
  1. AZOPT [Suspect]
     Active Substance: BRINZOLAMIDE
     Indication: EXFOLIATION GLAUCOMA
     Dosage: UNK
     Route: 047
  2. LUMIGAN [Suspect]
     Active Substance: BIMATOPROST
     Indication: ANGLE CLOSURE GLAUCOMA
  3. LUMIGAN [Suspect]
     Active Substance: BIMATOPROST
     Indication: EXFOLIATION GLAUCOMA

REACTIONS (9)
  - Conjunctival hyperaemia [Recovering/Resolving]
  - Corneal oedema [Not Recovered/Not Resolved]
  - Headache [Unknown]
  - Sudden visual loss [Not Recovered/Not Resolved]
  - Intraocular pressure increased [Not Recovered/Not Resolved]
  - Malignant glaucoma [Not Recovered/Not Resolved]
  - Eye pain [Recovering/Resolving]
  - Lens dislocation [Not Recovered/Not Resolved]
  - Pupil fixed [Recovering/Resolving]

NARRATIVE: CASE EVENT DATE: 20160210
